FAERS Safety Report 5958675-1 (Version None)
Quarter: 2008Q4

REPORT INFORMATION
  Report Type: 
  Country: None (occurrence: None)
  Receive Date: 20081110
  Receipt Date: 20081012
  Transmission Date: 20090506
  Serious: Yes (Death)
  Sender: FDA-Public Use
  Company Number: CHPA2008US18386

PATIENT
  Age: 51 Year
  Sex: Male

DRUGS (7)
  1. CAFFEINE CITRATE [Suspect]
     Dosage: ORAL
     Route: 048
  2. AMITRIPTYLINE HYDROCHLORIDE [Suspect]
     Dosage: ORAL
     Route: 048
  3. DRUG THERAPY NOS (DRUG THERAPY NOS) [Suspect]
     Dosage: ORAL
     Route: 048
  4. BENZODIAZEPINES (NO INGREDIENTS/SUBSTANCES) [Suspect]
     Dosage: ORAL
     Route: 048
  5. BUTALBITAL [Suspect]
     Dosage: ORAL
     Route: 048
  6. ETHANOL (ETHANOL) [Suspect]
     Dosage: ORAL
     Route: 048
  7. IBUPROFEN [Suspect]
     Dosage: ORAL
     Route: 048

REACTIONS (1)
  - DEATH [None]
